FAERS Safety Report 20730163 (Version 2)
Quarter: 2022Q2

REPORT INFORMATION
  Report Type: Spontaneous
  Country: FR (occurrence: FR)
  Receive Date: 20220420
  Receipt Date: 20220425
  Transmission Date: 20220721
  Serious: Yes (Hospitalization, Other)
  Sender: FDA-Public Use
  Company Number: None

PATIENT
  Age: 46 Year
  Sex: Female

DRUGS (5)
  1. TAHOR [Suspect]
     Active Substance: ATORVASTATIN CALCIUM
     Dosage: UNK
     Route: 065
     Dates: start: 20220228
  2. LANSOPRAZOLE [Suspect]
     Active Substance: LANSOPRAZOLE
     Dosage: UNK
     Route: 065
     Dates: start: 20220301
  3. NICARDIPINE HYDROCHLORIDE [Suspect]
     Active Substance: NICARDIPINE HYDROCHLORIDE
     Dosage: UNK
     Route: 065
  4. VILDAGLIPTIN [Suspect]
     Active Substance: VILDAGLIPTIN
     Dosage: UNK
     Route: 065
  5. ONDANSETRON [Suspect]
     Active Substance: ONDANSETRON
     Dosage: UNK
     Route: 065

REACTIONS (2)
  - Hepatic cytolysis [Recovering/Resolving]
  - Lymphopenia [Recovering/Resolving]

NARRATIVE: CASE EVENT DATE: 20220302
